FAERS Safety Report 9846500 (Version 1)
Quarter: 2014Q1

REPORT INFORMATION
  Report Type: Spontaneous
  Country: US (occurrence: None)
  Receive Date: 20140123
  Receipt Date: 20140123
  Transmission Date: 20141002
  Serious: Yes (Life-Threatening, Hospitalization, Disabling, Other)
  Sender: FDA-Public Use
  Company Number: None

PATIENT
  Age: 38 Year
  Sex: Female
  Weight: 54.43 kg

DRUGS (1)
  1. ZYVOX [Suspect]
     Indication: STAPHYLOCOCCAL INFECTION
     Dosage: 2  TWICE DAILY TAKEN BY MOUTH
     Route: 048
     Dates: start: 20111102, end: 20111115

REACTIONS (5)
  - Drug interaction [None]
  - Disability [None]
  - Pain [None]
  - Nervous system disorder [None]
  - Staphylococcal infection [None]
